FAERS Safety Report 13476802 (Version 1)
Quarter: 2017Q2

REPORT INFORMATION
  Report Type: Spontaneous
  Country: FR (occurrence: FR)
  Receive Date: 20170425
  Receipt Date: 20170425
  Transmission Date: 20170830
  Serious: Yes (Other)
  Sender: FDA-Public Use
  Company Number: FR-GLAXOSMITHKLINE-FR2017GSK058450

PATIENT
  Age: 58 Year
  Sex: Female

DRUGS (3)
  1. BENZODIAZEPINE [Concomitant]
     Active Substance: BENZODIAZEPINE
  2. NICOPATCH [Suspect]
     Active Substance: NICOTINE
     Indication: SMOKING CESSATION THERAPY
     Dosage: 21 MG, UNK
     Route: 062
  3. CODEINE [Concomitant]
     Active Substance: CODEINE

REACTIONS (2)
  - Nausea [Recovered/Resolved]
  - Nicotine dependence [Not Recovered/Not Resolved]
